FAERS Safety Report 8557098-9 (Version None)
Quarter: 2012Q3

REPORT INFORMATION
  Report Type: 
  Country: None (occurrence: None)
  Receive Date: 20120801
  Receipt Date: 20120730
  Transmission Date: 20120928
  Serious: Yes (Other)
  Sender: FDA-Public Use
  Company Number: CN-ROCHE-1094167

PATIENT
  Age: 72 Year
  Sex: Male
  Weight: 43.5 kg

DRUGS (1)
  1. XELODA [Suspect]
     Indication: COLON CANCER
     Route: 048
     Dates: start: 20120209

REACTIONS (4)
  - DECREASED APPETITE [None]
  - METASTASES TO LIVER [None]
  - MARASMUS [None]
  - WEIGHT DECREASED [None]
